FAERS Safety Report 9771083 (Version 1)
Quarter: 2013Q4

REPORT INFORMATION
  Report Type: Spontaneous
  Country: GB (occurrence: GB)
  Receive Date: 20131218
  Receipt Date: 20131218
  Transmission Date: 20140711
  Serious: Yes (Hospitalization, Other)
  Sender: FDA-Public Use
  Company Number: GB-PFIZER INC-2013361997

PATIENT
  Age: 83 Year
  Sex: Male
  Weight: 63.5 kg

DRUGS (2)
  1. LYRICA [Suspect]
     Indication: NEUROLOGICAL SYMPTOM
     Dosage: TOOK ONLY 4 OR 5 CAPSULES, THEN STOPPED.
     Route: 048
     Dates: start: 20100309
  2. PROSCAR [Concomitant]
     Indication: BENIGN PROSTATIC HYPERPLASIA
     Dosage: NOT STOPPED
     Dates: start: 1994

REACTIONS (2)
  - Presyncope [Recovered/Resolved with Sequelae]
  - Lower respiratory tract infection [Recovered/Resolved with Sequelae]
